FAERS Safety Report 12113883 (Version 2)
Quarter: 2016Q2

REPORT INFORMATION
  Report Type: Report from Study
  Country: JP (occurrence: JP)
  Receive Date: 20160225
  Receipt Date: 20160405
  Transmission Date: 20160815
  Serious: Yes (Other)
  Sender: FDA-Public Use
  Company Number: JP-BRISTOL-MYERS SQUIBB COMPANY-BMS-2016-012697

PATIENT
  Age: 73 Year
  Sex: Male
  Weight: 60 kg

DRUGS (11)
  1. APIXABAN [Suspect]
     Active Substance: APIXABAN
     Dosage: 2.5 MG, BID
     Route: 048
     Dates: start: 20140607
  2. CALBLOCK [Concomitant]
     Active Substance: AZELNIDIPINE
     Indication: HYPERTENSION
     Dosage: 16 MG, QD
     Route: 048
  3. NATRIX [Concomitant]
     Active Substance: INDAPAMIDE
     Indication: HYPERTENSION
     Dosage: 2 MG, QD
     Route: 048
  4. CLOPIDOGREL [Concomitant]
     Active Substance: CLOPIDOGREL BISULFATE
     Indication: PERIPHERAL ARTERIAL OCCLUSIVE DISEASE
     Dosage: 75 MG, QD
     Route: 048
  5. CILOSTAZOL. [Concomitant]
     Active Substance: CILOSTAZOL
     Indication: AORTIC ARTERIOSCLEROSIS
  6. PRONON [Concomitant]
     Active Substance: PROPAFENONE
     Indication: ADVERSE EVENT
     Dosage: 450 MG, QD
     Route: 048
     Dates: start: 20140125
  7. APIXABAN [Suspect]
     Active Substance: APIXABAN
     Indication: CEREBROVASCULAR ACCIDENT PROPHYLAXIS
     Dosage: 2.5 MG, BID
     Route: 048
     Dates: start: 20140123, end: 20140531
  8. OMEPRAZOLE. [Concomitant]
     Active Substance: OMEPRAZOLE
     Indication: PROPHYLAXIS
     Dosage: 20 MG, QD
     Route: 048
  9. LIPITOR [Concomitant]
     Active Substance: ATORVASTATIN CALCIUM
     Indication: LIPID METABOLISM DISORDER
     Dosage: 10 MG, QD
     Route: 048
  10. CLOPIDOGREL [Concomitant]
     Active Substance: CLOPIDOGREL BISULFATE
     Indication: AORTIC ARTERIOSCLEROSIS
  11. CILOSTAZOL. [Concomitant]
     Active Substance: CILOSTAZOL
     Indication: PERIPHERAL ARTERIAL OCCLUSIVE DISEASE
     Dosage: 200 MG, QD
     Route: 048
     Dates: start: 20140126, end: 20140215

REACTIONS (1)
  - Inguinal hernia repair [Unknown]

NARRATIVE: CASE EVENT DATE: 20140605
